FAERS Safety Report 8877494 (Version 1)
Quarter: 2012Q4

REPORT INFORMATION
  Report Type: Spontaneous
  Country: None (occurrence: None)
  Receive Date: 20121025
  Receipt Date: 20121025
  Transmission Date: 20130627
  Serious: Yes (Hospitalization)
  Sender: FDA-Public Use
  Company Number: 2012SP003382

PATIENT
  Age: 65 Year
  Sex: Male
  Weight: 58.2 kg

DRUGS (7)
  1. FLUOROURACIL (FLUOROURACIL) [Suspect]
     Indication: COLORECTAL CANCER METASTATIC
     Dates: start: 20120822
  2. OXALIPLATIN (OXALIPLATIN) [Suspect]
     Indication: COLORECTAL CANCER METASTATIC
     Route: 042
     Dates: start: 20120822
  3. IRINOTECAN [Suspect]
     Indication: COLORECTAL CANCER METASTATIC
     Route: 042
     Dates: start: 20120822
  4. CALCIUM FLUORIDE [Suspect]
     Indication: COLORECTAL CANCER METASTATIC
     Dates: start: 20120822
  5. BEVACIZUMAB [Suspect]
     Indication: COLORECTAL CANCER METASTATIC
     Route: 042
     Dates: start: 20120822
  6. FENTANYL CITRATE [Concomitant]
  7. ISONIAZIDE [Concomitant]

REACTIONS (6)
  - Dehydration [None]
  - Diarrhoea [None]
  - Hypoaesthesia oral [None]
  - Gingival bleeding [None]
  - Weight decreased [None]
  - Periodontitis [None]
